FAERS Safety Report 7378909-9 (Version None)
Quarter: 2011Q1

REPORT INFORMATION
  Report Type: 
  Country: None (occurrence: None)
  Receive Date: 20110328
  Receipt Date: 20110318
  Transmission Date: 20110831
  Serious: Yes (Hospitalization)
  Sender: FDA-Public Use
  Company Number: US-PURDUE-USA-2011-0065704

PATIENT
  Sex: Male

DRUGS (3)
  1. UNSPECIFIED STEROID MEDICATION [Concomitant]
     Indication: PRODUCT USED FOR UNKNOWN INDICATION
  2. UNSPECIFIED PAIN MEDICATION [Concomitant]
     Indication: PAIN
  3. COLACE CAPSULES [Suspect]
     Indication: PRODUCT USED FOR UNKNOWN INDICATION
     Dosage: UNK
     Dates: start: 20110302

REACTIONS (7)
  - DYSPHAGIA [None]
  - FOREIGN BODY [None]
  - SALIVARY HYPERSECRETION [None]
  - THROAT IRRITATION [None]
  - THROAT TIGHTNESS [None]
  - PHARYNGEAL OEDEMA [None]
  - PRODUCT QUALITY ISSUE [None]
